FAERS Safety Report 16753825 (Version 1)
Quarter: 2019Q3

REPORT INFORMATION
  Report Type: Spontaneous
  Country: GB (occurrence: GB)
  Receive Date: 20190829
  Receipt Date: 20190829
  Transmission Date: 20191005
  Serious: Yes (Other)
  Sender: FDA-Public Use
  Company Number: GB-AUROBINDO-AUR-APL-2019-056851

PATIENT

DRUGS (1)
  1. CITALOPRAM [Suspect]
     Active Substance: CITALOPRAM HYDROBROMIDE
     Indication: DEPRESSION
     Dosage: 20 MILLIGRAM
     Route: 048
     Dates: start: 20190426

REACTIONS (5)
  - Somnolence [Unknown]
  - Gingival bleeding [Not Recovered/Not Resolved]
  - Gingival recession [Unknown]
  - Middle insomnia [Not Recovered/Not Resolved]
  - Yawning [Unknown]

NARRATIVE: CASE EVENT DATE: 20190429
